FAERS Safety Report 4463859-8 (Version None)
Quarter: 2004Q3

REPORT INFORMATION
  Report Type: 
  Country: None (occurrence: None)
  Receive Date: 20040929
  Receipt Date: 20040601
  Transmission Date: 20050211
  Serious: Yes (Hospitalization)
  Sender: FDA-Public Use
  Company Number: 2004234892IN

PATIENT
  Age: 55 Year
  Sex: Female
  Weight: 65 kg

DRUGS (1)
  1. FRAGMIN [Suspect]
     Indication: PROPHYLAXIS
     Dosage: 2500 IU, SINGLE, SUBCUTANEOUS
     Route: 058
     Dates: start: 20040503

REACTIONS (2)
  - OEDEMA [None]
  - POST PROCEDURAL COMPLICATION [None]
